FAERS Safety Report 6686730-X (Version None)
Quarter: 2010Q2

REPORT INFORMATION
  Report Type: 
  Country: None (occurrence: None)
  Receive Date: 20100415
  Receipt Date: 20100406
  Transmission Date: 20101027
  Serious: Yes (Death)
  Sender: FDA-Public Use
  Company Number: 2010SP000654

PATIENT
  Age: 50 Year
  Sex: Female

DRUGS (12)
  1. LUNESTA [Suspect]
     Indication: INSOMNIA
     Dosage: ORAL
     Route: 048
     Dates: start: 20090901
  2. DARVOCET [Suspect]
     Indication: PAIN
     Dates: start: 20091003
  3. ALPRAZOLAM [Suspect]
     Indication: ANXIETY
     Dates: start: 20090301
  4. ALPRAZOLAM [Suspect]
     Indication: ANXIETY
     Dates: start: 20090902
  5. ALPRAZOLAM [Suspect]
     Indication: ANXIETY
     Dates: start: 20091003
  6. AMBIEN [Suspect]
     Indication: INSOMNIA
     Dates: start: 20090601
  7. AMBIEN [Suspect]
     Indication: INSOMNIA
     Dates: start: 20090901
  8. PREDNISONE TAB [Suspect]
     Dates: start: 20090501
  9. CIPRO [Suspect]
     Dates: start: 20090228
  10. CIPRO [Suspect]
     Dates: start: 20091009
  11. LORTAB [Suspect]
     Indication: PAIN
     Dates: start: 20090312
  12. IMMU-G [Concomitant]

REACTIONS (5)
  - COMPLETED SUICIDE [None]
  - HAEMOTHORAX [None]
  - HEPATIC RUPTURE [None]
  - INJURY [None]
  - PERITONEAL HAEMORRHAGE [None]
